FAERS Safety Report 18565528 (Version 1)
Quarter: 2020Q4

REPORT INFORMATION
  Report Type: Spontaneous
  Country: US (occurrence: US)
  Receive Date: 20201201
  Receipt Date: 20201201
  Transmission Date: 20210114
  Serious: Yes (Life-Threatening, Hospitalization)
  Sender: FDA-Public Use
  Company Number: None

PATIENT
  Age: 55 Year
  Sex: Male
  Weight: 121 kg

DRUGS (4)
  1. WARFARIN [Suspect]
     Active Substance: WARFARIN
     Indication: ATRIAL FIBRILLATION
     Dates: start: 20191102, end: 20201106
  2. AMIODARONE [Concomitant]
     Active Substance: AMIODARONE
     Dates: start: 20191102
  3. CLOPIDOGREL [Concomitant]
     Active Substance: CLOPIDOGREL BISULFATE
     Dates: start: 20191102, end: 20201106
  4. WARFARIN [Suspect]
     Active Substance: WARFARIN
     Indication: AORTIC VALVE REPLACEMENT
     Dates: start: 20191102, end: 20201106

REACTIONS (10)
  - Cerebellar haemorrhage [None]
  - Oropharyngeal pain [None]
  - Nausea [None]
  - Headache [None]
  - Dizziness [None]
  - Drug ineffective [None]
  - Therapy interrupted [None]
  - Asthenia [None]
  - Cerebral ventricle collapse [None]
  - Hypotension [None]

NARRATIVE: CASE EVENT DATE: 20201106
